FAERS Safety Report 25771393 (Version 1)
Quarter: 2025Q3

REPORT INFORMATION
  Report Type: Spontaneous
  Country: US (occurrence: US)
  Receive Date: 20250908
  Receipt Date: 20250908
  Transmission Date: 20251021
  Serious: No
  Sender: DOMPE FARMACEUTICI
  Company Number: US-FARMAPROD-202504-1332

PATIENT
  Sex: Male

DRUGS (8)
  1. OXERVATE [Suspect]
     Active Substance: CENEGERMIN-BKBJ
     Indication: Neurotrophic keratopathy
     Route: 047
     Dates: start: 20250328
  2. OXERVATE [Suspect]
     Active Substance: CENEGERMIN-BKBJ
  3. TYLENOL [Concomitant]
     Active Substance: ACETAMINOPHEN
  4. CYCLOSPORINE [Concomitant]
     Active Substance: CYCLOSPORINE
  5. AVENOVA [MACROGOL;PROPYLENE GLYCOL] [Concomitant]
  6. GENTEAL [CARBOMER;HYPROMELLOSE] [Concomitant]
  7. RETAINE PM [Concomitant]
     Active Substance: MINERAL OIL\PETROLATUM
  8. REFRESH P.M. [Concomitant]
     Active Substance: MINERAL OIL\PETROLATUM

REACTIONS (2)
  - Eye pain [Unknown]
  - Pain [Unknown]
